FAERS Safety Report 6914539-8 (Version None)
Quarter: 2010Q3

REPORT INFORMATION
  Report Type: 
  Country: None (occurrence: None)
  Receive Date: 20100809
  Receipt Date: 20100802
  Transmission Date: 20110219
  Serious: Yes (Hospitalization)
  Sender: FDA-Public Use
  Company Number: IT-ELI_LILLY_AND_COMPANY-IT201007007440

PATIENT
  Age: 58 Year
  Sex: Female

DRUGS (2)
  1. BYETTA [Suspect]
     Dosage: 10 UG, 2/D
     Route: 065
     Dates: start: 20090801
  2. BYETTA [Suspect]
     Dosage: 5 UG, 2/D

REACTIONS (3)
  - DECREASED APPETITE [None]
  - GUILLAIN-BARRE SYNDROME [None]
  - WEIGHT DECREASED [None]
